FAERS Safety Report 5599750-3 (Version None)
Quarter: 2008Q1

REPORT INFORMATION
  Report Type: 
  Country: None (occurrence: None)
  Receive Date: 20080117
  Receipt Date: 20080102
  Transmission Date: 20080703
  Serious: Yes (Other)
  Sender: FDA-Public Use
  Company Number: SPV1-2007-05112

PATIENT
  Age: 18 Year
  Sex: Male

DRUGS (3)
  1. MEZAVANT XL(MESALAZINE,MESALAMINE) TABLET [Suspect]
  2. SALOFALK /00747601/(MESALAZINE) UNKNOWN [Suspect]
     Indication: COLITIS ULCERATIVE
     Dosage: 0, ORAL
     Route: 048
  3. AZATHIOPRINE [Suspect]
     Indication: COLITIS ULCERATIVE

REACTIONS (5)
  - DIARRHOEA [None]
  - EOSINOPHILIC PNEUMONIA [None]
  - FATIGUE [None]
  - MALAISE [None]
  - THROMBOCYTHAEMIA [None]
